FAERS Safety Report 8629524 (Version 2)
Quarter: 2013Q4

REPORT INFORMATION
  Report Type: Spontaneous
  Country: US (occurrence: US)
  Receive Date: 20120622
  Receipt Date: 20131129
  Transmission Date: 20140711
  Serious: Yes (Hospitalization)
  Sender: FDA-Public Use
  Company Number: US-ASTRAZENECA-2012SE34425

PATIENT
  Age: 43 Year
  Sex: Male

DRUGS (3)
  1. NEXIUM [Suspect]
     Indication: GASTROOESOPHAGEAL REFLUX DISEASE
     Route: 048
  2. TUMS [Concomitant]
  3. PEPTO-BISMOL [Concomitant]

REACTIONS (15)
  - Limb discomfort [Unknown]
  - Pain [Unknown]
  - Road traffic accident [Unknown]
  - Osteoporosis [Unknown]
  - Multiple fractures [Unknown]
  - Arthritis [Unknown]
  - Depression [Unknown]
  - Back pain [Unknown]
  - Intervertebral disc degeneration [Unknown]
  - Intervertebral disc protrusion [Unknown]
  - Facet joint syndrome [Unknown]
  - Intervertebral disc space narrowing [Unknown]
  - Dislocation of vertebra [Unknown]
  - Osteopenia [Unknown]
  - Bone density abnormal [Unknown]
